FAERS Safety Report 23432200 (Version 2)
Quarter: 2024Q1

REPORT INFORMATION
  Report Type: Report from Study
  Country: CN (occurrence: CN)
  Receive Date: 20240123
  Receipt Date: 20240126
  Transmission Date: 20240410
  Serious: Yes (Death, Other)
  Sender: FDA-Public Use
  Company Number: CN-INNOVENT BIOLOGICS-INN2024000397

PATIENT

DRUGS (4)
  1. PEMAZYRE [Suspect]
     Active Substance: PEMIGATINIB
     Indication: Gastric cancer
     Dosage: 13.5 MG
     Route: 065
     Dates: start: 202207, end: 2023
  2. PEMAZYRE [Suspect]
     Active Substance: PEMIGATINIB
     Dosage: UNK MG
     Route: 065
     Dates: start: 2023, end: 202309
  3. OPDIVO [Concomitant]
     Active Substance: NIVOLUMAB
     Indication: Gastric cancer
     Dosage: UNK
     Route: 065
     Dates: start: 2023, end: 202309
  4. PACLITAXEL [Concomitant]
     Active Substance: PACLITAXEL
     Indication: Gastric cancer
     Dosage: UNK
     Route: 065
     Dates: start: 2023, end: 202309

REACTIONS (2)
  - Intestinal obstruction [Fatal]
  - Hepatic function abnormal [Unknown]

NARRATIVE: CASE EVENT DATE: 20230101
